FAERS Safety Report 5188066-5 (Version None)
Quarter: 2006Q4

REPORT INFORMATION
  Report Type: 
  Country: None (occurrence: None)
  Receive Date: 20061214
  Receipt Date: 20061129
  Transmission Date: 20070319
  Serious: Yes (Hospitalization, Other)
  Sender: FDA-Public Use
  Company Number: DE-2006-030443

PATIENT
  Age: 45 Year
  Sex: Female
  Weight: 54 kg

DRUGS (2)
  1. BETASERON [Suspect]
     Indication: MULTIPLE SCLEROSIS
     Dosage: 8 MIU, EVERY 2D, SUBCUTANEOUS
     Route: 058
     Dates: start: 20000620
  2. RANITIN (RANITIDINE HYDROCHLORIDE) [Concomitant]

REACTIONS (7)
  - BORRELIA INFECTION [None]
  - GAMMA-GLUTAMYLTRANSFERASE INCREASED [None]
  - INJECTION SITE ABSCESS [None]
  - INJECTION SITE PAIN [None]
  - LUPUS-LIKE SYNDROME [None]
  - PLATELET COUNT INCREASED [None]
  - WOUND INFECTION [None]
